FAERS Safety Report 20368343 (Version 1)
Quarter: 2022Q1

REPORT INFORMATION
  Report Type: Report from Study
  Country: US (occurrence: US)
  Receive Date: 20220124
  Receipt Date: 20220124
  Transmission Date: 20220424
  Serious: Yes (Hospitalization)
  Sender: FDA-Public Use
  Company Number: US-GILEAD-2022-0565680

PATIENT
  Age: 29 Year
  Sex: Female

DRUGS (3)
  1. AZTREONAM LYSINE [Suspect]
     Active Substance: AZTREONAM LYSINE
     Indication: Cystic fibrosis
     Dosage: 1 VIAL, TID, 4 WEEKS ON, 4 WEEKS OFF
     Route: 055
     Dates: start: 20131223
  2. TRIKAFTA [Concomitant]
     Active Substance: ELEXACAFTOR\IVACAFTOR\TEZACAFTOR
     Indication: Cystic fibrosis
     Dosage: TAKE 2 ORANGE TABLETS BY MOUTH EACH MORNING AND TAKE 1 BLUE TABLET BY MOUTH EACH EVENING
     Dates: start: 20191107
  3. ACETYLCYSTEINE [Concomitant]
     Active Substance: ACETYLCYSTEINE
     Indication: Cystic fibrosis
     Dosage: INHAKE 4 ML BY NEBULIZATION TWO TIMES A DAY
     Dates: start: 20171023

REACTIONS (1)
  - Influenza like illness [Unknown]
